FAERS Safety Report 15640795 (Version 1)
Quarter: 2018Q4

REPORT INFORMATION
  Report Type: Spontaneous
  Country: US (occurrence: US)
  Receive Date: 20181120
  Receipt Date: 20181120
  Transmission Date: 20190205
  Serious: Yes (Other)
  Sender: FDA-Public Use
  Company Number: US-PFIZER INC-2018474705

PATIENT
  Sex: Male

DRUGS (2)
  1. PROTONIX [Suspect]
     Active Substance: PANTOPRAZOLE SODIUM
     Dosage: UNK, 2X/DAY
  2. PROTONIX [Suspect]
     Active Substance: PANTOPRAZOLE SODIUM
     Indication: ANXIETY
     Dosage: UNK, DAILY

REACTIONS (6)
  - Peripheral nerve injury [Unknown]
  - Nausea [Unknown]
  - Limb discomfort [Unknown]
  - Spinal column injury [Unknown]
  - Nightmare [Unknown]
  - Product use in unapproved indication [Unknown]
